FAERS Safety Report 6984742-X (Version None)
Quarter: 2010Q3

REPORT INFORMATION
  Report Type: 
  Country: None (occurrence: None)
  Receive Date: 20100915
  Receipt Date: 20100906
  Transmission Date: 20110219
  Serious: Yes (Other)
  Sender: FDA-Public Use
  Company Number: ES-ASTRAZENECA-2010SE42095

PATIENT
  Age: 82 Year
  Sex: Male

DRUGS (8)
  1. MEROPENEM [Suspect]
     Indication: RESPIRATORY TRACT INFECTION
     Dosage: 1000 MG, VIAL 30 ML, 3G/DAY
     Route: 042
     Dates: start: 20100719, end: 20100731
  2. ACYCLOVIR SODIUM [Suspect]
     Indication: BONE MARROW TRANSPLANT
     Dates: start: 20100713, end: 20100803
  3. CYCLOSPORINE [Suspect]
     Indication: BONE MARROW TRANSPLANT
     Dates: start: 20100713
  4. AMIKACIN [Suspect]
     Indication: NEUTROPENIA
     Route: 042
     Dates: start: 20100713, end: 20100729
  5. CANCIDAS [Suspect]
     Indication: NEUTROPENIA
     Dosage: 50 MG, VIAL 10 ML SOL. PERF.
     Dates: start: 20100713, end: 20100805
  6. ZYVOX [Suspect]
     Indication: RESPIRATORY TRACT INFECTION
     Dosage: 2 MG/ML SOL. PERF, 10 BAGS OF 300 ML, 0.6G/TWO TIMES A DAY
     Route: 042
     Dates: start: 20100719, end: 20100726
  7. PANTOPRAZOLE [Concomitant]
     Indication: PROPHYLAXIS
     Dates: end: 20100718
  8. LANTUS [Concomitant]
     Indication: DIABETES MELLITUS
     Dosage: 1000 IU/L, OPTISET 10 PRECHARGED PENS
     Dates: end: 20100718

REACTIONS (1)
  - PANCYTOPENIA [None]
